FAERS Safety Report 8231214-0 (Version None)
Quarter: 2012Q1

REPORT INFORMATION
  Report Type: 
  Country: None (occurrence: None)
  Receive Date: 20120323
  Receipt Date: 20120323
  Transmission Date: 20120608
  Serious: Yes (Other)
  Sender: FDA-Public Use
  Company Number: None

PATIENT
  Age: 32 Year
  Sex: Female
  Weight: 58.967 kg

DRUGS (1)
  1. LO LOESTRIN FE [Suspect]

REACTIONS (2)
  - LIBIDO DECREASED [None]
  - HAEMORRHAGE [None]
